FAERS Safety Report 5985919-2 (Version None)
Quarter: 2008Q4

REPORT INFORMATION
  Report Type: 
  Country: None (occurrence: None)
  Receive Date: 20081208
  Receipt Date: 20081208
  Transmission Date: 20090506
  Serious: Yes (Life-Threatening, Hospitalization)
  Sender: FDA-Public Use
  Company Number: None

PATIENT
  Sex: Male
  Weight: 101.6057 kg

DRUGS (2)
  1. TOPROL-XL [Suspect]
     Indication: HYPERTENSION
     Dosage: 25 MG. 1 DAILY MOUTH
     Route: 048
     Dates: start: 20080507
  2. TOPROL-XL [Suspect]
     Indication: HYPERTENSION
     Dosage: 25 MG. 1 DAILY MOUTH
     Route: 048
     Dates: start: 20080508

REACTIONS (3)
  - ABDOMINAL PAIN UPPER [None]
  - DIARRHOEA [None]
  - FEELING ABNORMAL [None]
